FAERS Safety Report 7539838 (Version 4)
Quarter: 2017Q3

REPORT INFORMATION
  Report Type: Report from Study
  Country: JP (occurrence: JP)
  Receive Date: 20100813
  Receipt Date: 20170913
  Transmission Date: 20171128
  Serious: Yes (Death, Hospitalization, Other)
  Sender: FDA-Public Use
  Company Number: PHHY2010JP51555

PATIENT
  Age: 62 Year
  Sex: Male
  Weight: 57 kg

DRUGS (17)
  1. METHYCOBAL [Concomitant]
     Active Substance: METHYLCOBALAMIN
     Indication: METASTATIC RENAL CELL CARCINOMA
     Dosage: 1500 UG, QD
     Route: 048
     Dates: start: 20100218, end: 20100612
  2. AMLODIN [Concomitant]
     Active Substance: AMLODIPINE BESYLATE
     Indication: PRODUCT USED FOR UNKNOWN INDICATION
     Dosage: 5 MG, QD
     Route: 048
     Dates: start: 20090616, end: 20100524
  3. TAKEPRON [Concomitant]
     Active Substance: LANSOPRAZOLE
     Indication: PROPHYLAXIS
     Dosage: 15 MG, QD
     Route: 048
     Dates: start: 20090515, end: 20100618
  4. AFINITOR [Suspect]
     Active Substance: EVEROLIMUS
     Indication: METASTATIC RENAL CELL CARCINOMA
     Dosage: 5 MG, QD
     Route: 048
     Dates: start: 20100524, end: 20100608
  5. NEXAVAR [Concomitant]
     Active Substance: SORAFENIB
     Indication: METASTATIC RENAL CELL CARCINOMA
     Dosage: 800 MG, QD
     Route: 048
     Dates: start: 20100407, end: 20100518
  6. MS CONTIN [Concomitant]
     Active Substance: MORPHINE SULFATE
     Indication: METASTATIC RENAL CELL CARCINOMA
     Dosage: 20 MG, QD
     Route: 048
     Dates: start: 20090515, end: 20100825
  7. NABOAL SR [Concomitant]
     Active Substance: DICLOFENAC SODIUM
     Indication: METASTATIC RENAL CELL CARCINOMA
     Dosage: 75 MG, QD
     Route: 048
     Dates: start: 20090528, end: 20100825
  8. GLYCYRON [Concomitant]
     Active Substance: AMMONIUM GLYCYRRHIZATE\GLYCINE\METHIONINE
     Indication: PROPHYLAXIS
     Dosage: 3 DF, QD
     Route: 048
     Dates: start: 20090602, end: 20100616
  9. DECADRON [Concomitant]
     Active Substance: DEXAMETHASONE
     Indication: METASTATIC RENAL CELL CARCINOMA
     Dosage: 1 MG, QD
     Route: 048
     Dates: start: 20100331, end: 20100825
  10. LASIX [Concomitant]
     Active Substance: FUROSEMIDE
     Indication: METASTATIC RENAL CELL CARCINOMA
     Dosage: 20 MG, QD
     Route: 048
     Dates: start: 20100518, end: 20100618
  11. MORPHINE HYDROCHLORIDE [Concomitant]
     Active Substance: MORPHINE HYDROCHLORIDE
     Indication: METASTATIC RENAL CELL CARCINOMA
     Dosage: 10 MG, QD
     Route: 065
     Dates: start: 20100825
  12. AFINITOR [Suspect]
     Active Substance: EVEROLIMUS
     Dosage: 10 MG, QD
     Route: 048
     Dates: start: 20100609, end: 20100727
  13. SEIBULE [Concomitant]
     Active Substance: MIGLITOL
     Indication: PRODUCT USED FOR UNKNOWN INDICATION
     Dosage: 50 MG, TID
     Route: 048
     Dates: start: 20100615, end: 20100825
  14. LAC B [Concomitant]
     Active Substance: BIFIDOBACTERIUM SPP.
     Indication: METASTATIC RENAL CELL CARCINOMA
     Dosage: 3 G, QD
     Route: 048
     Dates: start: 20100416, end: 20100604
  15. MUCODYNE [Concomitant]
     Active Substance: CARBOCYSTEINE
     Indication: METASTATIC RENAL CELL CARCINOMA
     Dosage: 750 MG, QD
     Route: 048
     Dates: start: 20100518, end: 20100604
  16. SUNITINIB MALATE. [Concomitant]
     Active Substance: SUNITINIB MALATE
     Indication: METASTATIC RENAL CELL CARCINOMA
     Dosage: 50 MG, QD
     Route: 048
     Dates: start: 20090609, end: 20100316
  17. LENDORMIN D [Concomitant]
     Active Substance: BROTIZOLAM
     Indication: PRODUCT USED FOR UNKNOWN INDICATION
     Dosage: 0.25 MG, QD
     Route: 048
     Dates: start: 20090515, end: 20100825

REACTIONS (9)
  - Malignant neoplasm progression [Fatal]
  - Blood alkaline phosphatase increased [Not Recovered/Not Resolved]
  - Blood triglycerides increased [Not Recovered/Not Resolved]
  - Herpes zoster [Recovering/Resolving]
  - Gamma-glutamyltransferase increased [Not Recovered/Not Resolved]
  - Anaemia [Recovering/Resolving]
  - Hyperglycaemia [Recovering/Resolving]
  - Anaemia [Recovering/Resolving]
  - Stomatitis [Recovering/Resolving]

NARRATIVE: CASE EVENT DATE: 20100531
